FAERS Safety Report 6920620-X (Version None)
Quarter: 2010Q3

REPORT INFORMATION
  Report Type: 
  Country: None (occurrence: None)
  Receive Date: 20100812
  Receipt Date: 20100809
  Transmission Date: 20110219
  Serious: Yes (Other)
  Sender: FDA-Public Use
  Company Number: DE-WYE-G06520510

PATIENT
  Sex: Female

DRUGS (1)
  1. VENLAFAXINE HCL [Suspect]
     Route: 048
     Dates: start: 20100101

REACTIONS (2)
  - RESTLESSNESS [None]
  - SINUS TACHYCARDIA [None]
